FAERS Safety Report 10636145 (Version 2)
Quarter: 2015Q1

REPORT INFORMATION
  Report Type: Report from Study
  Country: US (occurrence: US)
  Receive Date: 20141205
  Receipt Date: 20150327
  Transmission Date: 20150720
  Serious: Yes (Other)
  Sender: FDA-Public Use
  Company Number: US-GILEAD-2014-0124837

PATIENT
  Age: 24 Year
  Sex: Female

DRUGS (3)
  1. PULMOZYME [Concomitant]
     Active Substance: DORNASE ALFA
     Indication: CYSTIC FIBROSIS
     Dosage: 1 MG/ML, UNK
     Route: 055
     Dates: start: 20100630
  2. COLISTIMETHATE [Concomitant]
     Active Substance: COLISTIMETHATE SODIUM
     Indication: CYSTIC FIBROSIS
     Dosage: 150 MG, UNK
     Route: 055
     Dates: start: 20121113
  3. AZTREONAM LYSINE [Suspect]
     Active Substance: AZTREONAM LYSINE
     Indication: CYSTIC FIBROSIS
     Dosage: 75 MG, UNK
     Route: 055
     Dates: start: 20100910, end: 20140630

REACTIONS (2)
  - Gastrointestinal tube insertion [Unknown]
  - Malnutrition [Unknown]
